FAERS Safety Report 5607026-0 (Version None)
Quarter: 2008Q1

REPORT INFORMATION
  Report Type: 
  Country: None (occurrence: None)
  Receive Date: 20080129
  Receipt Date: 20080118
  Transmission Date: 20080703
  Serious: Yes (Other)
  Sender: FDA-Public Use
  Company Number: IT-PFIZER INC-2008006257

PATIENT
  Sex: Female

DRUGS (4)
  1. SALAZOPYRIN EN [Suspect]
     Indication: RHEUMATOID ARTHRITIS
     Dosage: DAILY DOSE:1000MG-FREQ:DAILY
     Route: 048
     Dates: start: 20071120, end: 20071201
  2. MEDROL [Concomitant]
  3. OMEPRAZOLE [Concomitant]
  4. EFFERALGAN [Concomitant]

REACTIONS (2)
  - ERYTHEMA [None]
  - PRURITUS [None]
